FAERS Safety Report 5751798-1 (Version None)
Quarter: 2008Q2

REPORT INFORMATION
  Report Type: 
  Country: None (occurrence: None)
  Receive Date: 20080527
  Receipt Date: 20080513
  Transmission Date: 20081010
  Serious: Yes (Hospitalization)
  Sender: FDA-Public Use
  Company Number: 2006BI007819

PATIENT
  Age: 52 Year
  Sex: Female
  Weight: 90.7194 kg

DRUGS (1)
  1. AVONEX [Suspect]
     Indication: MULTIPLE SCLEROSIS
     Dosage: 30 UG; QW;
     Dates: start: 19981101

REACTIONS (12)
  - ARTHRITIS [None]
  - ARTHROPATHY [None]
  - ASTHENIA [None]
  - BLOOD THYROID STIMULATING HORMONE DECREASED [None]
  - DEVICE DISLOCATION [None]
  - GAIT DISTURBANCE [None]
  - GASTROINTESTINAL INFLAMMATION [None]
  - ILL-DEFINED DISORDER [None]
  - MUSCULAR WEAKNESS [None]
  - PERIPHERAL NERVE DECOMPRESSION [None]
  - PROCEDURAL PAIN [None]
  - SURGICAL FAILURE [None]
